FAERS Safety Report 10078901 (Version 1)
Quarter: 2014Q2

REPORT INFORMATION
  Report Type: Spontaneous
  Country: GR (occurrence: None)
  Receive Date: 20140411
  Receipt Date: 20140411
  Transmission Date: 20141212
  Serious: Yes (Hospitalization)
  Sender: FDA-Public Use
  Company Number: 2013-003094

PATIENT
  Age: 65 Year
  Sex: Female

DRUGS (2)
  1. ACTONEL [Suspect]
     Route: 048
     Dates: start: 201010, end: 201309
  2. VITAMIN D3 (COLECALCIFEROL) [Concomitant]

REACTIONS (12)
  - Skin disorder [None]
  - Weight decreased [None]
  - Joint swelling [None]
  - Oedema peripheral [None]
  - Neck pain [None]
  - Back pain [None]
  - Pain in extremity [None]
  - Pain in jaw [None]
  - Headache [None]
  - Fatigue [None]
  - Pyrexia [None]
  - Asthenia [None]
